FAERS Safety Report 5232952-4 (Version None)
Quarter: 2007Q1

REPORT INFORMATION
  Report Type: 
  Country: None (occurrence: None)
  Receive Date: 20070207
  Receipt Date: 20070124
  Transmission Date: 20070707
  Serious: Yes (Other)
  Sender: FDA-Public Use
  Company Number: US-KINGPHARMUSA00001-K200700077

PATIENT

DRUGS (1)
  1. BICILLIN L-A [Suspect]
     Indication: LYME DISEASE
     Dates: start: 20030101

REACTIONS (7)
  - BILIARY TRACT DISORDER [None]
  - DIARRHOEA [None]
  - FATIGUE [None]
  - LIVER FUNCTION TEST ABNORMAL [None]
  - NEUROLOGICAL SYMPTOM [None]
  - SOMNOLENCE [None]
  - VOMITING [None]
